FAERS Safety Report 23258890 (Version 1)
Quarter: 2023Q4

REPORT INFORMATION
  Report Type: Spontaneous
  Country: US (occurrence: None)
  Receive Date: 20231201
  Receipt Date: 20231201
  Transmission Date: 20240110
  Serious: Yes (Other)
  Sender: FDA-Public Use
  Company Number: None

PATIENT
  Age: 27 Year
  Sex: Female
  Weight: 88.45 kg

DRUGS (6)
  1. NEXPLANON [Suspect]
     Active Substance: ETONOGESTREL
     Dates: start: 20230828
  2. NEXPLANON [Concomitant]
     Active Substance: ETONOGESTREL
  3. LOSARTAN [Concomitant]
     Active Substance: LOSARTAN
  4. SPIRONOLACTONE [Concomitant]
     Active Substance: SPIRONOLACTONE
  5. BUSPAR [Concomitant]
     Active Substance: BUSPIRONE HYDROCHLORIDE
  6. Daily multi vitamin [Concomitant]

REACTIONS (1)
  - Heavy menstrual bleeding [None]

NARRATIVE: CASE EVENT DATE: 20230828
